FAERS Safety Report 15768757 (Version 1)
Quarter: 2018Q4

REPORT INFORMATION
  Report Type: Spontaneous
  Country: US (occurrence: US)
  Receive Date: 20181228
  Receipt Date: 20181228
  Transmission Date: 20190205
  Serious: Yes (Disabling)
  Sender: FDA-Public Use
  Company Number: US-TEVA-2018-US-992630

PATIENT

DRUGS (3)
  1. DOCETAXEL INJECTION [Suspect]
     Active Substance: DOCETAXEL
     Dosage: INJECTION CONCETRATE
     Route: 065
     Dates: start: 20151123, end: 20160324
  2. DOCETAXEL INJECTION [Suspect]
     Active Substance: DOCETAXEL
     Route: 065
     Dates: start: 20151123, end: 20160324
  3. TAXOTERE [Suspect]
     Active Substance: DOCETAXEL
     Route: 065
     Dates: start: 20151123, end: 20160324

REACTIONS (1)
  - Alopecia [Not Recovered/Not Resolved]
